FAERS Safety Report 20888038 (Version 3)
Quarter: 2022Q3

REPORT INFORMATION
  Report Type: Report from Study
  Country: US (occurrence: US)
  Receive Date: 20220529
  Receipt Date: 20220710
  Transmission Date: 20221026
  Serious: No
  Sender: FDA-Public Use
  Company Number: US-UCBSA-2022029287

PATIENT
  Sex: Female

DRUGS (2)
  1. ROTIGOTINE [Suspect]
     Active Substance: ROTIGOTINE
     Indication: Parkinson^s disease
     Dosage: 3MG
  2. ROTIGOTINE [Suspect]
     Active Substance: ROTIGOTINE
     Indication: Restless legs syndrome

REACTIONS (3)
  - Restless legs syndrome [Unknown]
  - Drug ineffective [Unknown]
  - Product adhesion issue [Unknown]
